FAERS Safety Report 5195086-3 (Version None)
Quarter: 2006Q4

REPORT INFORMATION
  Report Type: 
  Country: None (occurrence: None)
  Receive Date: 20061229
  Receipt Date: 20061010
  Transmission Date: 20070319
  Serious: Yes (Other)
  Sender: FDA-Public Use
  Company Number: US-SHR-US-2006-030318

PATIENT
  Age: 51 Year
  Sex: Male
  Weight: 73 kg

DRUGS (3)
  1. BETASERON [Suspect]
     Indication: RELAPSING-REMITTING MULTIPLE SCLEROSIS
     Dosage: 8 MIU, EVERY 2D
     Route: 058
     Dates: start: 20060622
  2. PROVIGIL [Concomitant]
     Indication: FATIGUE
     Dosage: 200 MG, 1X/DAY
     Dates: start: 20060701
  3. TYLENOL PM [Concomitant]
     Indication: SLEEP DISORDER
     Dosage: 2 UNK, BED T.
     Dates: start: 20060801

REACTIONS (3)
  - ANOREXIA [None]
  - ASTHENIA [None]
  - WEIGHT DECREASED [None]
